FAERS Safety Report 18321136 (Version 1)
Quarter: 2020Q3

REPORT INFORMATION
  Report Type: Spontaneous
  Country: IN (occurrence: IN)
  Receive Date: 20200928
  Receipt Date: 20200928
  Transmission Date: 20201103
  Serious: Yes (Other)
  Sender: FDA-Public Use
  Company Number: IN-PFIZER INC-2019422448

PATIENT
  Age: 21 Year
  Sex: Male

DRUGS (1)
  1. SUTENT [Suspect]
     Active Substance: SUNITINIB MALATE
     Indication: METASTATIC RENAL CELL CARCINOMA
     Dosage: 50 MG, CYCLIC (ONCE A DAY 14 DAYS ON 7 DAYS OFF)
     Route: 048
     Dates: start: 20190713

REACTIONS (7)
  - Abdominal distension [Unknown]
  - Pericardial effusion [Unknown]
  - Neoplasm progression [Unknown]
  - Constipation [Unknown]
  - Haemorrhage [Unknown]
  - Inflammation [Unknown]
  - Hypertension [Unknown]

NARRATIVE: CASE EVENT DATE: 201909
